FAERS Safety Report 15609972 (Version 2)
Quarter: 2018Q4

REPORT INFORMATION
  Report Type: Spontaneous
  Country: FR (occurrence: FR)
  Receive Date: 20181113
  Receipt Date: 20181113
  Transmission Date: 20190205
  Serious: Yes (Hospitalization)
  Sender: FDA-Public Use
  Company Number: FR-TEVA-2018-FR-974601

PATIENT
  Age: 45 Year
  Sex: Female

DRUGS (2)
  1. ANDROCUR 50 MG, COMPRIM? [Suspect]
     Active Substance: CYPROTERONE ACETATE
     Indication: HYPERANDROGENISM
     Dosage: 50 MILLIGRAM DAILY;
     Route: 048
     Dates: start: 1988, end: 201412
  2. ESTREVA, COMPRIM? S?CABLE [Suspect]
     Active Substance: ESTRADIOL
     Indication: HYPERANDROGENISM
     Dosage: 1 DOSAGE FORMS DAILY;
     Route: 048
     Dates: start: 1988, end: 201412

REACTIONS (1)
  - Meningioma [Recovered/Resolved]

NARRATIVE: CASE EVENT DATE: 201412
